FAERS Safety Report 12414363 (Version 1)
Quarter: 2016Q2

REPORT INFORMATION
  Report Type: Spontaneous
  Country: US (occurrence: US)
  Receive Date: 20160528
  Receipt Date: 20160528
  Transmission Date: 20160815
  Serious: Yes (Death)
  Sender: FDA-Public Use
  Company Number: US-AUROBINDO-AUR-APL-2016-06942

PATIENT
  Age: 55 Year
  Sex: Female

DRUGS (3)
  1. PAROXETINE. [Suspect]
     Active Substance: PAROXETINE
     Indication: PRODUCT USED FOR UNKNOWN INDICATION
     Route: 048
  2. CARISOPRODOL TABLETS [Suspect]
     Active Substance: CARISOPRODOL
     Indication: PRODUCT USED FOR UNKNOWN INDICATION
     Route: 048
  3. CARISOPRODOL TABLETS [Suspect]
     Active Substance: CARISOPRODOL
     Dosage: UNK
     Route: 048

REACTIONS (5)
  - Tachycardia [None]
  - Hypotension [None]
  - Unresponsive to stimuli [None]
  - Death [Fatal]
  - Seizure [None]
